FAERS Safety Report 15839929 (Version 1)
Quarter: 2019Q1

REPORT INFORMATION
  Report Type: Report from Study
  Country: US (occurrence: US)
  Receive Date: 20190117
  Receipt Date: 20190117
  Transmission Date: 20190417
  Serious: Yes (Death)
  Sender: FDA-Public Use
  Company Number: US-ACTELION-A-NJ2018-182888

PATIENT
  Age: 57 Year
  Sex: Female

DRUGS (13)
  1. HYDROCODONE BITARTRATE AND ACETAMINOPHEN [Concomitant]
     Active Substance: ACETAMINOPHEN\HYDROCODONE BITARTRATE
  2. COMBIVENT [Concomitant]
     Active Substance: ALBUTEROL SULFATE\IPRATROPIUM BROMIDE
  3. IPRATROPIUM/ALBUTEROL [Concomitant]
     Active Substance: ALBUTEROL\IPRATROPIUM
  4. TORSEMIDE. [Concomitant]
     Active Substance: TORSEMIDE
  5. VITAMIN D3 [Concomitant]
     Active Substance: CHOLECALCIFEROL
  6. FLUTICASONE. [Concomitant]
     Active Substance: FLUTICASONE
  7. LYRICA [Concomitant]
     Active Substance: PREGABALIN
  8. OPSUMIT [Suspect]
     Active Substance: MACITENTAN
     Indication: PULMONARY ARTERIAL HYPERTENSION
     Dosage: 10 MG, QD
     Route: 048
     Dates: start: 20150709
  9. LOSARTAN POTASICO [Concomitant]
     Active Substance: LOSARTAN
  10. SILDENAFIL. [Concomitant]
     Active Substance: SILDENAFIL
  11. ACID CONTROL [Concomitant]
     Active Substance: FAMOTIDINE
  12. DULERA [Concomitant]
     Active Substance: FORMOTEROL FUMARATE DIHYDRATE\MOMETASONE FUROATE
  13. FUROSEMIDE. [Concomitant]
     Active Substance: FUROSEMIDE

REACTIONS (2)
  - Tooth fracture [Unknown]
  - Death [Fatal]

NARRATIVE: CASE EVENT DATE: 20181207
